FAERS Safety Report 5277002-9 (Version None)
Quarter: 2007Q1

REPORT INFORMATION
  Report Type: 
  Country: None (occurrence: None)
  Receive Date: 20070327
  Receipt Date: 20070102
  Transmission Date: 20070707
  Serious: No
  Sender: FDA-Public Use
  Company Number: US-BRISTOL-MYERS SQUIBB COMPANY-13629472

PATIENT
  Age: 43 Year
  Sex: Female
  Weight: 56 kg

DRUGS (7)
  1. ORENCIA [Suspect]
     Indication: RHEUMATOID ARTHRITIS
     Dates: start: 20061226
  2. PREDNISONE [Concomitant]
  3. METHOTREXATE [Concomitant]
  4. SULFASALAZINE [Concomitant]
  5. FOLIC ACID [Concomitant]
  6. ASCORBIC ACID [Concomitant]
  7. MULTI-VITAMINS [Concomitant]

REACTIONS (1)
  - FEELING JITTERY [None]
